FAERS Safety Report 7715843-6 (Version None)
Quarter: 2011Q3

REPORT INFORMATION
  Report Type: 
  Country: None (occurrence: None)
  Receive Date: 20110829
  Receipt Date: 20110829
  Transmission Date: 20111222
  Serious: No
  Sender: FDA-Public Use
  Company Number: None

PATIENT
  Age: 52 Year
  Sex: Male
  Weight: 127 kg

DRUGS (1)
  1. CETIRIZINE HCL [Suspect]
     Indication: SEASONAL ALLERGY
     Dosage: 10MG.
     Route: 048
     Dates: start: 20110519, end: 20110523

REACTIONS (9)
  - AGITATION [None]
  - NEUROPATHY PERIPHERAL [None]
  - COORDINATION ABNORMAL [None]
  - MYALGIA [None]
  - HYPOAESTHESIA [None]
  - ARTHRALGIA [None]
  - SOMNOLENCE [None]
  - CONFUSIONAL STATE [None]
  - MUSCULAR WEAKNESS [None]
